FAERS Safety Report 6573982-X (Version None)
Quarter: 2010Q1

REPORT INFORMATION
  Report Type: 
  Country: None (occurrence: None)
  Receive Date: 20100208
  Receipt Date: 20100128
  Transmission Date: 20100710
  Serious: Yes (Other)
  Sender: FDA-Public Use
  Company Number: US-JNJFOC-20100201818

PATIENT
  Age: 52 Year
  Sex: Male
  Weight: 95.26 kg

DRUGS (8)
  1. TYLENOL (CAPLET) [Suspect]
     Route: 048
  2. TYLENOL (CAPLET) [Suspect]
     Indication: ARTHRITIS
     Route: 048
  3. ACTOS [Concomitant]
     Indication: DIABETES MELLITUS
  4. LISINOPRIL [Concomitant]
     Indication: HYPERTENSION
  5. NORVASC [Concomitant]
     Indication: HYPERTENSION
  6. NEURONTIN [Concomitant]
     Indication: NERVE INJURY
  7. COUMADIN [Concomitant]
     Indication: PAIN
  8. FIORICET [Concomitant]
     Indication: MIGRAINE

REACTIONS (4)
  - AMNESIA [None]
  - ARTHRALGIA [None]
  - BALANCE DISORDER [None]
  - PRODUCT QUALITY ISSUE [None]
